FAERS Safety Report 6383244-1 (Version None)
Quarter: 2009Q3

REPORT INFORMATION
  Report Type: 
  Country: None (occurrence: None)
  Receive Date: 20090930
  Receipt Date: 20090928
  Transmission Date: 20100115
  Serious: Yes (Other)
  Sender: FDA-Public Use
  Company Number: TR-ROXANE LABORATORIES, INC.-2009-RO-01002RO

PATIENT
  Age: 26 Month
  Sex: Female

DRUGS (2)
  1. TOPIRAMATE [Suspect]
  2. TOPIRAMATE [Suspect]

REACTIONS (3)
  - CONVULSION [None]
  - MYOCLONUS [None]
  - OVERDOSE [None]
